FAERS Safety Report 8966282 (Version 1)
Quarter: 2012Q4

REPORT INFORMATION
  Report Type: 
  Country: JP (occurrence: JP)
  Receive Date: 20121214
  Receipt Date: 20121214
  Transmission Date: 20130627
  Serious: Yes (Hospitalization, Other)
  Sender: FDA-Public Use
  Company Number: JP-BRISTOL-MYERS SQUIBB COMPANY-17201278

PATIENT
  Age: 7 None

DRUGS (3)
  1. ABILIFY TABS [Suspect]
     Indication: BIPOLAR I DISORDER
     Dosage: Dose reduced and then stopped on unk date
     Route: 048
  2. SERTRALINE HCL [Concomitant]
     Dosage: tab
  3. MILNACIPRAN [Concomitant]

REACTIONS (2)
  - Neuroleptic malignant syndrome [Recovering/Resolving]
  - Parkinson^s disease [Unknown]
